FAERS Safety Report 5353434-5 (Version None)
Quarter: 2007Q2

REPORT INFORMATION
  Report Type: 
  Country: None (occurrence: None)
  Receive Date: 20070612
  Receipt Date: 20070604
  Transmission Date: 20071010
  Serious: Yes (Other)
  Sender: FDA-Public Use
  Company Number: PHEH2007US08241

PATIENT
  Age: 64 Year
  Sex: Female

DRUGS (8)
  1. CLOZARIL [Suspect]
     Dosage: 425 MG, QD
     Route: 048
  2. POTASSIUM ACETATE [Concomitant]
  3. EFFEXOR [Concomitant]
  4. HALDOL [Concomitant]
  5. DEPAKOTE [Concomitant]
  6. NEXIUM [Concomitant]
  7. ASPIRIN [Concomitant]
  8. ALBUTEROL [Concomitant]

REACTIONS (2)
  - MYELOPROLIFERATIVE DISORDER [None]
  - WHITE BLOOD CELL COUNT DECREASED [None]
